FAERS Safety Report 8910750 (Version 2)
Quarter: 2012Q4

REPORT INFORMATION
  Report Type: 
  Country: CO (occurrence: CO)
  Receive Date: 20121116
  Receipt Date: 20121120
  Transmission Date: 20130627
  Serious: Yes (Other)
  Sender: FDA-Public Use
  Company Number: CO-PFIZER INC-2012285189

PATIENT
  Age: 39 Year
  Sex: Female

DRUGS (1)
  1. ADVIL [Suspect]
     Indication: FLU SYMPTOMS
     Dosage: 2 capsules each 6-8 hours
     Route: 065
     Dates: start: 20121112, end: 20121112

REACTIONS (1)
  - Gastritis [Recovering/Resolving]
